FAERS Safety Report 6980359-1 (Version None)
Quarter: 2010Q3

REPORT INFORMATION
  Report Type: 
  Country: None (occurrence: None)
  Receive Date: 20100914
  Receipt Date: 20100910
  Transmission Date: 20110219
  Serious: Yes (Death)
  Sender: FDA-Public Use
  Company Number: CN-ROCHE-726335

PATIENT
  Age: 59 Year
  Sex: Male

DRUGS (3)
  1. CELLCEPT [Suspect]
     Indication: RENAL TRANSPLANT
     Route: 048
     Dates: start: 20050121, end: 20080101
  2. SANDIMMUNE [Concomitant]
     Indication: RENAL TRANSPLANT
     Route: 048
     Dates: start: 20050121, end: 20080101
  3. CORTICOSTEROID NOS [Concomitant]
     Indication: RENAL TRANSPLANT
     Dates: start: 20050121, end: 20080101

REACTIONS (1)
  - DEATH [None]
